FAERS Safety Report 5223113-3 (Version None)
Quarter: 2007Q1

REPORT INFORMATION
  Report Type: 
  Country: None (occurrence: None)
  Receive Date: 20070129
  Receipt Date: 20061009
  Transmission Date: 20070707
  Serious: Yes (Life-Threatening, Hospitalization)
  Sender: FDA-Public Use
  Company Number: FR-PFIZER INC-2007005398

PATIENT
  Sex: Female
  Weight: 75 kg

DRUGS (4)
  1. LYRICA [Suspect]
     Indication: PAIN
     Route: 048
     Dates: start: 20060928, end: 20060928
  2. TRAMADOL HYDROCHLORIDE/ACETAMINOPHEN [Suspect]
     Indication: PAIN
     Route: 048
     Dates: start: 20060928, end: 20060928
  3. LORMETAZEPAM [Concomitant]
     Indication: INSOMNIA
     Route: 048
  4. LEXOMIL [Concomitant]
     Indication: ANXIETY
     Route: 048
     Dates: start: 20060426

REACTIONS (1)
  - ANGIOEDEMA [None]
